FAERS Safety Report 15740848 (Version 3)
Quarter: 2022Q1

REPORT INFORMATION
  Report Type: Spontaneous
  Country: US (occurrence: US)
  Receive Date: 20181219
  Receipt Date: 20220127
  Transmission Date: 20220423
  Serious: Yes (Death, Other)
  Sender: FDA-Public Use
  Company Number: PHEH2018US053581

PATIENT
  Sex: Male

DRUGS (1)
  1. TASIGNA [Suspect]
     Active Substance: NILOTINIB
     Indication: Chronic myeloid leukaemia
     Dosage: 2 DF, BID
     Route: 048
     Dates: start: 201407, end: 201801

REACTIONS (17)
  - Myocardial infarction [Fatal]
  - Cardiovascular disorder [Unknown]
  - Cellulitis [Unknown]
  - Cholecystitis [Unknown]
  - Coronary artery disease [Unknown]
  - Sleep apnoea syndrome [Unknown]
  - Renal disorder [Unknown]
  - Hypervolaemia [Unknown]
  - Injury [Unknown]
  - Dyslipidaemia [Unknown]
  - Gastrooesophageal reflux disease [Unknown]
  - Gout [Unknown]
  - Oedema peripheral [Unknown]
  - Anxiety [Unknown]
  - Arteriosclerosis [Unknown]
  - Emotional distress [Unknown]
  - Pain [Unknown]

NARRATIVE: CASE EVENT DATE: 20140101
